FAERS Safety Report 25978937 (Version 2)
Quarter: 2025Q4

REPORT INFORMATION
  Report Type: Spontaneous
  Country: US (occurrence: US)
  Receive Date: 20251030
  Receipt Date: 20251031
  Transmission Date: 20260118
  Serious: No
  Sender: TEVA
  Company Number: US-TEVA-VS-3382068

PATIENT
  Age: 57 Year
  Sex: Female

DRUGS (1)
  1. AJOVY [Suspect]
     Active Substance: FREMANEZUMAB-VFRM
     Indication: Product used for unknown indication
     Dosage: STRENGTH : 225 MG/1.5 ML
     Route: 065

REACTIONS (7)
  - Injection site bruising [Unknown]
  - Drug dose omission by device [Unknown]
  - Skin injury [Unknown]
  - Device issue [Unknown]
  - Injection site haemorrhage [Unknown]
  - Frustration tolerance decreased [Unknown]
  - Device delivery system issue [Unknown]

NARRATIVE: CASE EVENT DATE: 20250101
